FAERS Safety Report 25612289 (Version 2)
Quarter: 2025Q4

REPORT INFORMATION
  Report Type: Spontaneous
  Country: US (occurrence: US)
  Receive Date: 20250728
  Receipt Date: 20251007
  Transmission Date: 20260117
  Serious: No
  Sender: SANOFI AVENTIS
  Company Number: US-SA-2025SA064617

PATIENT
  Age: 50 Year
  Sex: Female

DRUGS (3)
  1. DUPIXENT [Suspect]
     Active Substance: DUPILUMAB
     Indication: Asthma
     Dosage: 300 MG, QOW
     Route: 058
     Dates: start: 20250311
  2. DUPIXENT [Suspect]
     Active Substance: DUPILUMAB
     Indication: Dermatitis atopic
  3. DUPIXENT [Suspect]
     Active Substance: DUPILUMAB
     Indication: Asthma

REACTIONS (9)
  - Sleep disorder due to a general medical condition [Unknown]
  - Rebound atopic dermatitis [Unknown]
  - Asthma [Unknown]
  - Product dose omission issue [Unknown]
  - Rebound effect [Unknown]
  - Drug ineffective [Unknown]
  - Pain [Unknown]
  - Polyp [Unknown]
  - Rash [Unknown]

NARRATIVE: CASE EVENT DATE: 20250101
